FAERS Safety Report 20019008 (Version 1)
Quarter: 2021Q4

REPORT INFORMATION
  Report Type: Spontaneous
  Country: CN (occurrence: CN)
  Receive Date: 20211101
  Receipt Date: 20211101
  Transmission Date: 20220303
  Serious: Yes (Other)
  Sender: FDA-Public Use
  Company Number: CN-AMNEAL PHARMACEUTICALS-2021-AMRX-04362

PATIENT
  Sex: Male

DRUGS (1)
  1. ALBENZA [Suspect]
     Active Substance: ALBENDAZOLE
     Indication: Product used for unknown indication
     Dosage: UNK (10 TABS)
     Route: 065
     Dates: start: 202110

REACTIONS (5)
  - Syncope [Unknown]
  - Condition aggravated [Unknown]
  - Pruritus [Unknown]
  - Drug eruption [Unknown]
  - Pyrexia [Unknown]

NARRATIVE: CASE EVENT DATE: 20211001
